FAERS Safety Report 5656284-5 (Version None)
Quarter: 2008Q1

REPORT INFORMATION
  Report Type: 
  Country: None (occurrence: None)
  Receive Date: 20080309
  Receipt Date: 20070801
  Transmission Date: 20080703
  Serious: No
  Sender: FDA-Public Use
  Company Number: US-BAYER-200711920BCC

PATIENT
  Age: 59 Year
  Sex: Female
  Weight: 82 kg

DRUGS (8)
  1. ALEVE [Suspect]
     Indication: ARTHRITIS
     Dosage: TOTAL DAILY DOSE: 440 MG  UNIT DOSE: 220 MG
     Route: 048
     Dates: start: 20070501
  2. ALEVE [Suspect]
     Dosage: TOTAL DAILY DOSE: 220 MG  UNIT DOSE: 220 MG
     Route: 048
  3. ASPIRIN [Suspect]
     Indication: DRUG USE FOR UNKNOWN INDICATION
     Route: 048
  4. VASOTEC [Concomitant]
  5. TOPROL [Concomitant]
  6. PREMARIN [Concomitant]
  7. LIPITOR [Concomitant]
  8. TRICOR [Concomitant]

REACTIONS (6)
  - HEART RATE DECREASED [None]
  - HYPERTENSION [None]
  - JOINT SWELLING [None]
  - NERVE COMPRESSION [None]
  - RASH [None]
  - TINNITUS [None]
